FAERS Safety Report 18213704 (Version 2)
Quarter: 2020Q4

REPORT INFORMATION
  Report Type: Spontaneous
  Country: US (occurrence: US)
  Receive Date: 20200831
  Receipt Date: 20201006
  Transmission Date: 20210113
  Serious: Yes (Other)
  Sender: FDA-Public Use
  Company Number: NVSC2020US237541

PATIENT

DRUGS (4)
  1. CARBOPLATIN. [Suspect]
     Active Substance: CARBOPLATIN
     Indication: FOETAL EXPOSURE DURING PREGNANCY
     Dosage: 400 MG/M2 (EVERY CYCLE LASTING 21 DAYS, 4 CYCELS)
     Route: 064
  2. CAPECITABINE. [Suspect]
     Active Substance: CAPECITABINE
     Indication: FOETAL EXPOSURE DURING PREGNANCY
     Dosage: 1000 MG, BID (FOR 14 DAYS, WITH EACH CYCLE LASTING 28 DAYS, 6 CYCLES)
     Route: 064
  3. TEMOZOLOMIDE. [Suspect]
     Active Substance: TEMOZOLOMIDE
     Indication: FOETAL EXPOSURE DURING PREGNANCY
     Dosage: 250 MG, BID (WITH EACH CYCLE LASTING 28 DAYS, 6 CYCLES)
     Route: 064
  4. PACLITAXEL. [Suspect]
     Active Substance: PACLITAXEL
     Indication: FOETAL EXPOSURE DURING PREGNANCY
     Dosage: 175 MG/M2 (EVERY 21 DAYS, 4 CYCLES)
     Route: 064

REACTIONS (4)
  - Foetal exposure during pregnancy [Unknown]
  - Jaundice neonatal [Unknown]
  - Premature baby [Unknown]
  - Low birth weight baby [Unknown]
